FAERS Safety Report 12991075 (Version 2)
Quarter: 2016Q4

REPORT INFORMATION
  Report Type: Spontaneous
  Country: US (occurrence: US)
  Receive Date: 20161201
  Receipt Date: 20161215
  Transmission Date: 20170207
  Serious: Yes (Hospitalization, Other)
  Sender: FDA-Public Use
  Company Number: US-AKORN PHARMACEUTICALS-2016AKN00850

PATIENT
  Age: 62 Year
  Sex: Female

DRUGS (3)
  1. AMICAR [Suspect]
     Active Substance: AMINOCAPROIC ACID
     Indication: DISSEMINATED INTRAVASCULAR COAGULATION
     Dosage: 1000 MG, 4X/DAY AS NEEDED
     Route: 048
     Dates: end: 20160809
  2. INDERAL [Concomitant]
     Active Substance: PROPRANOLOL HYDROCHLORIDE
     Indication: HYPERTENSION
  3. HYDROCHLOROTHIAZIDE. [Concomitant]
     Active Substance: HYDROCHLOROTHIAZIDE
     Indication: HYPERTENSION

REACTIONS (8)
  - Cerebrovascular accident [Not Recovered/Not Resolved]
  - Haemorrhage [Unknown]
  - Fatigue [Not Recovered/Not Resolved]
  - Delayed recovery from anaesthesia [Unknown]
  - Speech disorder [Unknown]
  - Amnesia [Not Recovered/Not Resolved]
  - Visual impairment [Not Recovered/Not Resolved]
  - Myocardial necrosis marker increased [Unknown]

NARRATIVE: CASE EVENT DATE: 201608
